FAERS Safety Report 9893055 (Version 2)
Quarter: 2014Q1

REPORT INFORMATION
  Report Type: Spontaneous
  Country: US (occurrence: US)
  Receive Date: 20140213
  Receipt Date: 20140316
  Transmission Date: 20141002
  Serious: No
  Sender: FDA-Public Use
  Company Number: US-009507513-1401USA010920

PATIENT
  Age: 59 Year
  Sex: Female

DRUGS (1)
  1. EMEND [Suspect]
     Indication: NAUSEA
     Dosage: 125 MG ON DAY ONE, 80 MG ON DAY TWO AND DAY THREE
     Route: 048
     Dates: start: 201309, end: 201402

REACTIONS (3)
  - Drug dose omission [Unknown]
  - Product quality issue [Unknown]
  - No adverse event [Unknown]
